FAERS Safety Report 10532635 (Version 2)
Quarter: 2014Q4

REPORT INFORMATION
  Report Type: Spontaneous
  Country: US (occurrence: US)
  Receive Date: 20141021
  Receipt Date: 20141021
  Transmission Date: 20150529
  Serious: Yes (Other)
  Sender: FDA-Public Use
  Company Number: US-MUNDIPHARMA DS AND PHARMACOVIGILANCE-USA-2014-0117238

PATIENT
  Sex: Male
  Weight: 117.91 kg

DRUGS (4)
  1. LYRICA [Concomitant]
     Active Substance: PREGABALIN
     Indication: NEURALGIA
     Dosage: 400 MG, Q4- 6H
     Route: 048
  2. OXYCONTIN [Suspect]
     Active Substance: OXYCODONE HYDROCHLORIDE
     Indication: NEURALGIA
     Dosage: 60 MG, BID
     Route: 048
  3. LYRICA [Concomitant]
     Active Substance: PREGABALIN
     Indication: DRUG WITHDRAWAL SYNDROME
     Dosage: 50 MG, DAILY
     Route: 048
     Dates: start: 2013
  4. OXYCONTIN [Suspect]
     Active Substance: OXYCODONE HYDROCHLORIDE
     Indication: BACK PAIN
     Dosage: 60 MG, 5/DAY
     Route: 048

REACTIONS (14)
  - Activities of daily living impaired [Unknown]
  - Abnormal behaviour [Recovered/Resolved]
  - Weight increased [Recovered/Resolved]
  - Abasia [Unknown]
  - Speech disorder [Unknown]
  - Pain [Unknown]
  - Hyperhidrosis [Unknown]
  - Feeling abnormal [Recovered/Resolved]
  - Myalgia [Unknown]
  - Drug dependence [Unknown]
  - Drug withdrawal syndrome [Unknown]
  - Feeling of body temperature change [Unknown]
  - Bone pain [Unknown]
  - Mood altered [Recovered/Resolved]
